FAERS Safety Report 16873041 (Version 1)
Quarter: 2019Q4

REPORT INFORMATION
  Report Type: Spontaneous
  Country: AR (occurrence: AR)
  Receive Date: 20191001
  Receipt Date: 20191001
  Transmission Date: 20200122
  Serious: Yes (Death, Other)
  Sender: FDA-Public Use
  Company Number: AR-PFIZER INC-2019377010

PATIENT
  Age: 80 Year
  Sex: Male

DRUGS (2)
  1. INLYTA [Suspect]
     Active Substance: AXITINIB
     Indication: RENAL CANCER
     Dosage: 10 MG, DAILY
     Dates: start: 20190610, end: 201906
  2. INLYTA [Suspect]
     Active Substance: AXITINIB
     Dosage: 5 MG DAILY
     Dates: end: 201909

REACTIONS (2)
  - Death [Fatal]
  - Hypertension [Unknown]

NARRATIVE: CASE EVENT DATE: 20190620
